FAERS Safety Report 5529078-9 (Version None)
Quarter: 2007Q4

REPORT INFORMATION
  Report Type: 
  Country: None (occurrence: None)
  Receive Date: 20071129
  Receipt Date: 20061108
  Transmission Date: 20080405
  Serious: No
  Sender: FDA-Public Use
  Company Number: A0626744A

PATIENT
  Age: 64 Year
  Sex: Female

DRUGS (4)
  1. BUPROPION HYDROCHLORIDE [Suspect]
     Indication: DEPRESSION
     Dosage: 150MG TWICE PER DAY
     Route: 048
     Dates: start: 20061001, end: 20061108
  2. WELLBUTRIN SR [Suspect]
     Indication: DEPRESSION
     Dosage: 150MG PER DAY
     Route: 048
     Dates: start: 20060401, end: 20061001
  3. THYROID TAB [Concomitant]
  4. ST. JOHNS WORT [Concomitant]

REACTIONS (5)
  - DISTURBANCE IN ATTENTION [None]
  - DYSPHAGIA [None]
  - PAIN IN JAW [None]
  - THROAT TIGHTNESS [None]
  - VISION BLURRED [None]
